FAERS Safety Report 5820389-6 (Version None)
Quarter: 2008Q3

REPORT INFORMATION
  Report Type: 
  Country: None (occurrence: None)
  Receive Date: 20080724
  Receipt Date: 20070622
  Transmission Date: 20090109
  Serious: Yes (Other)
  Sender: FDA-Public Use
  Company Number: A0659689A

PATIENT
  Age: 68 Year
  Sex: Female

DRUGS (4)
  1. AVANDIA [Suspect]
     Dosage: 1TAB PER DAY
     Route: 048
     Dates: end: 20070621
  2. GLIPIZIDE [Concomitant]
  3. GLUCOPHAGE [Concomitant]
  4. TENORMIN [Concomitant]

REACTIONS (1)
  - CARDIAC FAILURE CONGESTIVE [None]
